FAERS Safety Report 8789662 (Version 3)
Quarter: 2013Q1

REPORT INFORMATION
  Report Type: Spontaneous
  Country: GB (occurrence: None)
  Receive Date: 20120907
  Receipt Date: 20121019
  Transmission Date: 20140127
  Serious: Yes (Disabling)
  Sender: FDA-Public Use
  Company Number: DSA_59200_2012

PATIENT
  Age: 85 Year
  Sex: Male

DRUGS (7)
  1. METRONIDAZOLE [Suspect]
     Indication: PRODUCT USED FOR UNKNOWN INDICATION
     Dosage: (DF)
     Dates: start: 20120725, end: 20120801
  2. WARFARIN SODIUM [Concomitant]
  3. FUROSEMIDE [Concomitant]
  4. RAMIPRIL [Concomitant]
  5. SPIRONOLACTONE [Concomitant]
  6. POLYURETHANE [Concomitant]
  7. SULFADIAZINE SILVER [Concomitant]

REACTIONS (4)
  - Skin swelling [None]
  - Pruritus generalised [None]
  - Electrocardiogram abnormal [None]
  - Atrial fibrillation [None]
